FAERS Safety Report 8430949-4 (Version None)
Quarter: 2012Q2

REPORT INFORMATION
  Report Type: 
  Country: None (occurrence: None)
  Receive Date: 20120612
  Receipt Date: 20120608
  Transmission Date: 20120825
  Serious: No
  Sender: FDA-Public Use
  Company Number: US-BAYER-2012-058056

PATIENT
  Age: 65 Year
  Sex: Female
  Weight: 86 kg

DRUGS (7)
  1. IRON [Concomitant]
  2. XANAX [Concomitant]
     Route: 048
  3. CRESTOR [Concomitant]
  4. CORTISONE ACETATE [Concomitant]
  5. ALEVE (CAPLET) [Suspect]
     Indication: BACK PAIN
     Dosage: UNK
     Route: 048
     Dates: start: 20100101, end: 20100101
  6. FOLIC ACID [Concomitant]
  7. SYNTHROID [Concomitant]

REACTIONS (1)
  - BACK PAIN [None]
